FAERS Safety Report 7814932-5 (Version None)
Quarter: 2011Q4

REPORT INFORMATION
  Report Type: 
  Country: None (occurrence: None)
  Receive Date: 20111013
  Receipt Date: 20111013
  Transmission Date: 20120403
  Serious: Yes (Life-Threatening)
  Sender: FDA-Public Use
  Company Number: None

PATIENT
  Age: 65 Year
  Sex: Male
  Weight: 90.7194 kg

DRUGS (3)
  1. LEVOTHYROXINE SODIUM [Concomitant]
  2. METFORMIN HCL [Suspect]
     Indication: BLOOD GLUCOSE INCREASED
     Dosage: 500 MG 1 DAILY
     Dates: start: 20110901, end: 20110922
  3. METFORMIN HCL [Suspect]
     Indication: TYPE 2 DIABETES MELLITUS
     Dosage: 500 MG 1 DAILY
     Dates: start: 20110901, end: 20110922

REACTIONS (2)
  - RASH [None]
  - SKIN DISCOLOURATION [None]
